FAERS Safety Report 9242903 (Version 3)
Quarter: 2013Q3

REPORT INFORMATION
  Report Type: Spontaneous
  Country: US (occurrence: US)
  Receive Date: 20130419
  Receipt Date: 20130814
  Transmission Date: 20140515
  Serious: Yes (Death, Hospitalization, Disabling)
  Sender: FDA-Public Use
  Company Number: US-INCYTE CORPORATION-2013IN000767

PATIENT
  Age: 74 Year
  Sex: Female
  Weight: 68.35 kg

DRUGS (17)
  1. JAKAFI [Suspect]
     Indication: MYELOFIBROSIS
     Dosage: 20 MG, BID
     Route: 048
     Dates: start: 201204, end: 201208
  2. JAKAFI [Suspect]
     Dosage: 10 MG, BID
     Route: 048
     Dates: start: 201208, end: 201303
  3. PRIMAQUINE [Suspect]
     Indication: PNEUMOCYSTIS JIROVECII PNEUMONIA
     Dosage: 52.6 MG, QD (TWO 26.3 MG TABLETS)
     Route: 048
     Dates: start: 2013
  4. AMBIEN [Concomitant]
     Indication: INSOMNIA
     Dosage: 5 MG, QHS
     Route: 048
  5. COREG [Concomitant]
     Indication: CARDIAC FAILURE CONGESTIVE
     Dosage: 3.125 MG, BID
     Route: 048
  6. CORTEF [Concomitant]
     Indication: ENDOCRINE DISORDER
     Dosage: 10 MG, BID
     Route: 048
  7. NORCO [Concomitant]
     Indication: PAIN
     Dosage: 5 MG/325 MG, Q4H PRN
     Route: 048
  8. PERIDEX [Concomitant]
     Indication: GINGIVITIS
     Dosage: 15 ML, BID
     Route: 048
  9. TYLENOL [Concomitant]
     Indication: PAIN
     Dosage: 650 MG, Q4H PRN
  10. TYLENOL [Concomitant]
     Indication: PYREXIA
  11. VENTOLIN HFA [Concomitant]
     Indication: DYSPNOEA
     Dosage: 2 PUFFS, Q4H PRN
  12. ZOCOR [Concomitant]
     Indication: BLOOD CHOLESTEROL INCREASED
     Dosage: 40 MG, QHS
  13. ZOCOR [Concomitant]
     Indication: BLOOD TRIGLYCERIDES
  14. ZESTRIL [Concomitant]
     Indication: HYPERTENSION
     Dosage: 2.5 MG, QD
  15. ZESTRIL [Concomitant]
     Indication: CARDIAC DISORDER
  16. PROTONIX [Concomitant]
     Dosage: 40 MG, BID
  17. PRILOSEC [Concomitant]
     Indication: GASTROOESOPHAGEAL REFLUX DISEASE
     Dosage: 20 MG, BID
     Route: 048

REACTIONS (8)
  - Increased upper airway secretion [Fatal]
  - Asthenia [Fatal]
  - Respiratory failure [Fatal]
  - Pneumocystis jirovecii pneumonia [Recovered/Resolved with Sequelae]
  - Methaemoglobinaemia [Unknown]
  - Depressed level of consciousness [Fatal]
  - Respiratory distress [Recovered/Resolved with Sequelae]
  - Pyrexia [Recovered/Resolved]
